FAERS Safety Report 8123208-0 (Version None)
Quarter: 2012Q1

REPORT INFORMATION
  Report Type: 
  Country: None (occurrence: None)
  Receive Date: 20120208
  Receipt Date: 20120204
  Transmission Date: 20120608
  Serious: Yes (Death, Other)
  Sender: FDA-Public Use
  Company Number: PHHY2012GB010505

PATIENT
  Age: 34 Year
  Sex: Male

DRUGS (8)
  1. CLOZAPINE [Suspect]
     Dosage: 350 MG, UNK
  2. OLANZAPINE [Concomitant]
     Dosage: 17.5 MG, QD
  3. BECLOMETHASONE DIPROPIONATE [Concomitant]
  4. OMEPRAZOLE [Concomitant]
     Dosage: 20 MG, TID
  5. ALBUTEROL SULFATE AUTOHALER [Concomitant]
  6. FERROUS SULFATE TAB [Concomitant]
  7. CHLORHEXIDINE GLUCONATE [Concomitant]
  8. SERTRALINE HYDROCHLORIDE [Concomitant]
     Dosage: 100 MG, QD

REACTIONS (11)
  - ARTERIOSCLEROSIS CORONARY ARTERY [None]
  - CARDIOPULMONARY FAILURE [None]
  - WRONG DRUG ADMINISTERED [None]
  - PULMONARY OEDEMA [None]
  - HEPATOMEGALY [None]
  - LEFT VENTRICULAR HYPERTROPHY [None]
  - CARDIAC DISORDER [None]
  - OBESITY [None]
  - PULMONARY CONGESTION [None]
  - HEPATIC STEATOSIS [None]
  - CARDIOMEGALY [None]
